FAERS Safety Report 9523804 (Version 1)
Quarter: 2013Q3

REPORT INFORMATION
  Report Type: Spontaneous
  Country: FR (occurrence: FR)
  Receive Date: 20130916
  Receipt Date: 20130916
  Transmission Date: 20140515
  Serious: Yes (Death)
  Sender: FDA-Public Use
  Company Number: FR-009507513-1309FRA004074

PATIENT
  Age: 83 Year
  Sex: Female

DRUGS (8)
  1. INEGY [Suspect]
     Dosage: 1 DF, QD
     Route: 048
  2. METHOTREXATE [Suspect]
     Dosage: UNK
     Dates: end: 20130801
  3. CORTANCYL [Suspect]
     Dosage: 30 MG, QD
     Route: 048
  4. INORIAL [Suspect]
     Dosage: 20 MG, QD
     Route: 048
     Dates: end: 20130806
  5. FORTZAAR [Suspect]
     Dosage: 1 DF, QD
     Route: 048
  6. MOPRAL [Suspect]
     Dosage: 20 MG, QD
     Route: 048
     Dates: end: 20130806
  7. PREVISCAN [Suspect]
     Dosage: 10 MG, QD
  8. PREVISCAN [Suspect]
     Dosage: 15 MG, QD
     Route: 048
     Dates: end: 20130806

REACTIONS (1)
  - Interstitial lung disease [Fatal]
